FAERS Safety Report 16978886 (Version 1)
Quarter: 2019Q4

REPORT INFORMATION
  Report Type: Spontaneous
  Country: US (occurrence: US)
  Receive Date: 20191029
  Receipt Date: 20191029
  Transmission Date: 20200122
  Serious: Yes (Other)
  Sender: FDA-Public Use
  Company Number: None

PATIENT
  Age: 45 Year
  Sex: Female
  Weight: 63.9 kg

DRUGS (2)
  1. EMGALITY [Suspect]
     Active Substance: GALCANEZUMAB-GNLM
     Indication: MIGRAINE
     Dates: start: 20181205, end: 20190921
  2. MULTI  VITAMIN [Concomitant]
     Active Substance: VITAMINS

REACTIONS (3)
  - Menstruation irregular [None]
  - Menorrhagia [None]
  - Metrorrhagia [None]

NARRATIVE: CASE EVENT DATE: 20181210
